FAERS Safety Report 16550985 (Version 1)
Quarter: 2019Q3

REPORT INFORMATION
  Report Type: Spontaneous
  Country: US (occurrence: US)
  Receive Date: 20190709
  Receipt Date: 20190709
  Transmission Date: 20191004
  Serious: Yes (Hospitalization)
  Sender: FDA-Public Use
  Company Number: None

PATIENT
  Age: 71 Year
  Sex: Male

DRUGS (8)
  1. ENBREL [Suspect]
     Active Substance: ETANERCEPT
     Indication: RHEUMATOID ARTHRITIS
     Dosage: ?          OTHER FREQUENCY:EVERY WEEK;?
     Route: 058
     Dates: start: 20131106
  2. GABAPENTIN CAP 100 MG [Concomitant]
     Active Substance: GABAPENTIN
  3. METHOTREXATE TAB 2.5 MG [Concomitant]
  4. MONTELUKAST TAB 10 MG [Concomitant]
  5. ESCITALOPRAM TAB 10 MG [Concomitant]
  6. ZOLPIDEM TAB 10 MG [Concomitant]
  7. NORTRIPTYLIN CAP 10 MG [Concomitant]
  8. SIMVASTATIN TAB 40 MG [Concomitant]

REACTIONS (2)
  - Choking [None]
  - Lung infection [None]
